FAERS Safety Report 20222439 (Version 2)
Quarter: 2022Q1

REPORT INFORMATION
  Report Type: Spontaneous
  Country: BR (occurrence: None)
  Receive Date: 20211223
  Receipt Date: 20220113
  Transmission Date: 20220423
  Serious: Yes (Death, Other)
  Sender: FDA-Public Use
  Company Number: 2021A884140

PATIENT
  Sex: Female

DRUGS (1)
  1. TAGRISSO [Suspect]
     Active Substance: OSIMERTINIB
     Dosage: 1 L, UNKNOWN
     Route: 048
     Dates: start: 202104

REACTIONS (2)
  - Haemorrhagic necrotic pancreatitis [Not Recovered/Not Resolved]
  - Septic shock [Fatal]
